FAERS Safety Report 17193488 (Version 1)
Quarter: 2019Q4

REPORT INFORMATION
  Report Type: Spontaneous
  Country: US (occurrence: US)
  Receive Date: 20191223
  Receipt Date: 20191223
  Transmission Date: 20200122
  Serious: No
  Sender: FDA-Public Use
  Company Number: US-GLAXOSMITHKLINE-US2019228104

PATIENT
  Sex: Male

DRUGS (5)
  1. BREO ELLIPTA [Suspect]
     Active Substance: FLUTICASONE FUROATE\VILANTEROL TRIFENATATE
     Indication: IDIOPATHIC PULMONARY FIBROSIS
     Dosage: 1 PUFF(S), 1D
     Route: 065
     Dates: start: 20191121
  2. OXYGEN. [Concomitant]
     Active Substance: OXYGEN
     Indication: PRODUCT USED FOR UNKNOWN INDICATION
     Dosage: UNK
     Route: 065
  3. ADVAIR DISKUS [Suspect]
     Active Substance: FLUTICASONE PROPIONATE\SALMETEROL XINAFOATE
     Indication: IDIOPATHIC PULMONARY FIBROSIS
     Dosage: 1 PUFF(S), BID
     Route: 065
     Dates: start: 1999
  4. LEVOFLOXACIN. [Suspect]
     Active Substance: LEVOFLOXACIN
     Indication: PRODUCT USED FOR UNKNOWN INDICATION
     Dosage: UNK
     Route: 065
  5. BREO ELLIPTA [Suspect]
     Active Substance: FLUTICASONE FUROATE\VILANTEROL TRIFENATATE
     Indication: ASTHMA

REACTIONS (11)
  - Throat tightness [Unknown]
  - Intentional underdose [Unknown]
  - Product use in unapproved indication [Unknown]
  - Product label confusion [Unknown]
  - Product dispensing error [Unknown]
  - Blood glucose increased [Unknown]
  - Feeling hot [Unknown]
  - Rash [Unknown]
  - Labelled drug-disease interaction medication error [Unknown]
  - Pruritus [Unknown]
  - Lip swelling [Unknown]
